FAERS Safety Report 19646254 (Version 1)
Quarter: 2021Q3

REPORT INFORMATION
  Report Type: Report from Study
  Country: FR (occurrence: FR)
  Receive Date: 20210802
  Receipt Date: 20210802
  Transmission Date: 20211014
  Serious: Yes (Hospitalization, Other)
  Sender: FDA-Public Use
  Company Number: FR-TAKEDA-FR201842514

PATIENT
  Age: 72 Year
  Sex: Male
  Weight: 49 kg

DRUGS (23)
  1. TEDUGLUTIDE [Suspect]
     Active Substance: TEDUGLUTIDE
     Indication: SHORT-BOWEL SYNDROME
     Dosage: 2.4 MG, 7 DOSES PER WEEK
     Route: 065
     Dates: start: 20160309, end: 20160719
  2. TEDUGLUTIDE [Suspect]
     Active Substance: TEDUGLUTIDE
     Dosage: 2.4 MG, 7 DOSES PER WEEK
     Route: 065
     Dates: start: 20160905, end: 20180220
  3. TEDUGLUTIDE [Suspect]
     Active Substance: TEDUGLUTIDE
     Dosage: 2.4 MG, 7 DOSE PER WEEK
     Route: 065
     Dates: start: 20180226
  4. TEDUGLUTIDE [Suspect]
     Active Substance: TEDUGLUTIDE
     Dosage: 1.2 MG, 7 DOSES PER WEEK
     Route: 065
     Dates: start: 20160720, end: 20160802
  5. TEDUGLUTIDE [Suspect]
     Active Substance: TEDUGLUTIDE
     Dosage: 1.2 MG, 7 DOSES PER WEEK
     Route: 065
     Dates: start: 20160720, end: 20160802
  6. TEDUGLUTIDE [Suspect]
     Active Substance: TEDUGLUTIDE
     Dosage: 1.2 MG, 7 DOSES PER WEEK
     Route: 065
     Dates: start: 20160720, end: 20160802
  7. TEDUGLUTIDE [Suspect]
     Active Substance: TEDUGLUTIDE
     Dosage: 2.25 MG, 7 DOSES PER WEEK
     Route: 065
     Dates: start: 20160803, end: 20160904
  8. TEDUGLUTIDE [Suspect]
     Active Substance: TEDUGLUTIDE
     Dosage: 2.25 MG, 7 DOSES PER WEEK
     Route: 065
     Dates: start: 20160803, end: 20160904
  9. TEDUGLUTIDE [Suspect]
     Active Substance: TEDUGLUTIDE
     Indication: SHORT-BOWEL SYNDROME
     Dosage: 2.4 MG, 7 DOSES PER WEEK
     Route: 065
     Dates: start: 20160309, end: 20160719
  10. TEDUGLUTIDE [Suspect]
     Active Substance: TEDUGLUTIDE
     Dosage: 2.4 MG, 7 DOSE PER WEEK
     Route: 065
     Dates: start: 20180226
  11. ZYVOXID [Concomitant]
     Active Substance: LINEZOLID
     Indication: DEVICE RELATED SEPSIS
  12. TEDUGLUTIDE [Suspect]
     Active Substance: TEDUGLUTIDE
     Dosage: 1.2 MG, 7 DOSES PER WEEK
     Route: 065
     Dates: start: 20160720, end: 20160802
  13. TEDUGLUTIDE [Suspect]
     Active Substance: TEDUGLUTIDE
     Dosage: 2.4 MG, 7 DOSE PER WEEK
     Route: 065
     Dates: start: 20180226
  14. TEDUGLUTIDE [Suspect]
     Active Substance: TEDUGLUTIDE
     Indication: SHORT-BOWEL SYNDROME
     Dosage: 2.4 MG, 7 DOSES PER WEEK
     Route: 065
     Dates: start: 20160309, end: 20160719
  15. TEDUGLUTIDE [Suspect]
     Active Substance: TEDUGLUTIDE
     Dosage: 2.25 MG, 7 DOSES PER WEEK
     Route: 065
     Dates: start: 20160803, end: 20160904
  16. TEDUGLUTIDE [Suspect]
     Active Substance: TEDUGLUTIDE
     Dosage: 2.4 MG, 7 DOSES PER WEEK
     Route: 065
     Dates: start: 20160905, end: 20180220
  17. TEDUGLUTIDE [Suspect]
     Active Substance: TEDUGLUTIDE
     Dosage: 2.4 MG, 7 DOSES PER WEEK
     Route: 065
     Dates: start: 20160905, end: 20180220
  18. TEDUGLUTIDE [Suspect]
     Active Substance: TEDUGLUTIDE
     Dosage: 2.25 MG, 7 DOSES PER WEEK
     Route: 065
     Dates: start: 20160803, end: 20160904
  19. TEDUGLUTIDE [Suspect]
     Active Substance: TEDUGLUTIDE
     Dosage: 2.4 MG, 7 DOSE PER WEEK
     Route: 065
     Dates: start: 20180226
  20. AUGMENTINE [Concomitant]
     Active Substance: AMOXICILLIN\CLAVULANATE POTASSIUM
     Indication: DEVICE RELATED SEPSIS
  21. TEDUGLUTIDE [Suspect]
     Active Substance: TEDUGLUTIDE
     Indication: SHORT-BOWEL SYNDROME
     Dosage: 2.4 MG, 7 DOSES PER WEEK
     Route: 065
     Dates: start: 20160309, end: 20160719
  22. TEDUGLUTIDE [Suspect]
     Active Substance: TEDUGLUTIDE
     Dosage: 2.4 MG, 7 DOSES PER WEEK
     Route: 065
     Dates: start: 20160905, end: 20180220
  23. VANCOMYCINE [Concomitant]
     Active Substance: VANCOMYCIN
     Indication: DEVICE RELATED SEPSIS

REACTIONS (2)
  - Generalised tonic-clonic seizure [Recovered/Resolved]
  - Device related infection [Recovered/Resolved]

NARRATIVE: CASE EVENT DATE: 20181029
